FAERS Safety Report 22980535 (Version 2)
Quarter: 2023Q4

REPORT INFORMATION
  Report Type: Spontaneous
  Country: FR (occurrence: FR)
  Receive Date: 20230925
  Receipt Date: 20231004
  Transmission Date: 20240110
  Serious: Yes (Other)
  Sender: FDA-Public Use
  Company Number: None

PATIENT
  Age: 75 Year
  Sex: Female
  Weight: 63 kg

DRUGS (23)
  1. PIPERACILLIN SODIUM\TAZOBACTAM SODIUM [Suspect]
     Active Substance: PIPERACILLIN SODIUM\TAZOBACTAM SODIUM
     Indication: Product used for unknown indication
     Dosage: 12 GRAM, QD (4 GX3/D)
     Route: 042
     Dates: start: 20220422, end: 20220429
  2. POSACONAZOLE [Suspect]
     Active Substance: POSACONAZOLE
     Indication: Antifungal treatment
     Dosage: 300 MILLIGRAM, QD (100 MGX3/D)
     Route: 048
     Dates: start: 20220420, end: 20220430
  3. VALACYCLOVIR HYDROCHLORIDE [Suspect]
     Active Substance: VALACYCLOVIR HYDROCHLORIDE
     Indication: Product used for unknown indication
     Dosage: 500 MILLIGRAM, QD
     Route: 048
     Dates: start: 20220415, end: 20220430
  4. AMIKACIN [Suspect]
     Active Substance: AMIKACIN
     Indication: Product used for unknown indication
     Dosage: 1000 MILLIGRAM, QD (500 MGX2/D)
     Route: 042
     Dates: start: 20220420, end: 20220502
  5. AMIKACIN [Suspect]
     Active Substance: AMIKACIN
     Dosage: 1000 MILLIGRAM, QD (500 MGX2/D)
     Route: 042
     Dates: start: 20220506, end: 20220520
  6. VANCOMYCIN [Suspect]
     Active Substance: VANCOMYCIN
     Indication: Infection
     Dosage: 2 GRAM, QD
     Route: 042
     Dates: start: 20220419, end: 20220510
  7. FUROSEMIDE [Suspect]
     Active Substance: FUROSEMIDE
     Indication: Cardiac failure
     Dosage: 60 MILLIGRAM, QD
     Route: 048
     Dates: start: 20220428, end: 20220430
  8. FUROSEMIDE [Suspect]
     Active Substance: FUROSEMIDE
     Dosage: NOT SPECIFIED DOSAGE
     Route: 065
     Dates: start: 20220501, end: 20220505
  9. FUROSEMIDE [Suspect]
     Active Substance: FUROSEMIDE
     Indication: Cardiac failure
     Dosage: 40 MILLIGRAM, QD
     Route: 042
     Dates: start: 20220415, end: 20220415
  10. FUROSEMIDE [Suspect]
     Active Substance: FUROSEMIDE
     Dosage: 40 MILLIGRAM, QD
     Route: 042
     Dates: start: 20220418, end: 20220418
  11. FUROSEMIDE [Suspect]
     Active Substance: FUROSEMIDE
     Dosage: 20 MILLIGRAM, QD
     Route: 042
     Dates: start: 20220421, end: 20220421
  12. FUROSEMIDE [Suspect]
     Active Substance: FUROSEMIDE
     Dosage: 20 MILLIGRAM, QD
     Route: 042
     Dates: start: 20220424, end: 20220425
  13. FUROSEMIDE [Suspect]
     Active Substance: FUROSEMIDE
     Dosage: 20 MILLIGRAM, QD
     Route: 042
     Dates: start: 20220514, end: 20220514
  14. FUROSEMIDE [Suspect]
     Active Substance: FUROSEMIDE
     Dosage: 80 MILLIGRAM, QD
     Route: 042
     Dates: start: 20220520, end: 20220521
  15. FUROSEMIDE [Suspect]
     Active Substance: FUROSEMIDE
     Dosage: 40 MILLIGRAM, QD
     Route: 042
     Dates: start: 20220522, end: 20220525
  16. HYDREA [Suspect]
     Active Substance: HYDROXYUREA
     Indication: Myeloid leukaemia
     Dosage: 1500 MILLIGRAM, QD
     Route: 048
     Dates: start: 20220415, end: 20220417
  17. HYDREA [Suspect]
     Active Substance: HYDROXYUREA
     Dosage: 3000 MILLIGRAM, QD
     Route: 048
     Dates: start: 20220417, end: 20220420
  18. LOMUSTINE [Suspect]
     Active Substance: LOMUSTINE
     Indication: Acute myeloid leukaemia
     Dosage: 326 MILLIGRAM
     Route: 048
     Dates: start: 20220426, end: 20220426
  19. CYTARABINE [Suspect]
     Active Substance: CYTARABINE
     Indication: Acute myeloid leukaemia
     Dosage: 160 MILLIGRAM, QD
     Route: 048
     Dates: start: 20220426, end: 20220502
  20. AMPHOTERICIN B [Concomitant]
     Active Substance: AMPHOTERICIN B
     Dosage: UNK
     Route: 065
  21. OXYCODONE [Concomitant]
     Active Substance: OXYCODONE
     Dosage: UNK
     Route: 065
  22. MEROPENEM ANHYDROUS [Concomitant]
     Active Substance: MEROPENEM ANHYDROUS
     Dosage: UNK
     Route: 065
  23. IDARUBICIN [Concomitant]
     Active Substance: IDARUBICIN
     Dosage: UNK
     Route: 065

REACTIONS (1)
  - Acute kidney injury [Recovering/Resolving]

NARRATIVE: CASE EVENT DATE: 20220427
